FAERS Safety Report 24282704 (Version 1)
Quarter: 2024Q3

REPORT INFORMATION
  Report Type: Spontaneous
  Country: US (occurrence: None)
  Receive Date: 20240902
  Receipt Date: 20240902
  Transmission Date: 20241016
  Serious: Yes (Life-Threatening)
  Sender: Public
  Company Number: None

PATIENT
  Age: 36 Year
  Sex: Male
  Weight: 65 kg

DRUGS (2)
  1. RUXOLITINIB [Suspect]
     Active Substance: RUXOLITINIB
     Indication: Haemophagocytic lymphohistiocytosis
     Dosage: FREQUENCY : TWICE A DAY;?
     Route: 048
     Dates: start: 20240817, end: 20240826
  2. DEXAMETHASONE [Suspect]
     Active Substance: DEXAMETHASONE
     Dates: start: 20240726

REACTIONS (9)
  - Off label use [None]
  - Cryptosporidiosis infection [None]
  - Hepatic function abnormal [None]
  - Cytopenia [None]
  - Condition aggravated [None]
  - Thrombocytopenia [None]
  - Gastrointestinal haemorrhage [None]
  - Portal hypertension [None]
  - Ascites [None]

NARRATIVE: CASE EVENT DATE: 20240826
